FAERS Safety Report 6147264-4 (Version None)
Quarter: 2009Q2

REPORT INFORMATION
  Report Type: 
  Country: None (occurrence: None)
  Receive Date: 20090408
  Receipt Date: 20090401
  Transmission Date: 20091009
  Serious: Yes (Other)
  Sender: FDA-Public Use
  Company Number: US-ELI_LILLY_AND_COMPANY-US200903004912

PATIENT
  Sex: Male

DRUGS (9)
  1. BYETTA [Suspect]
     Indication: TYPE 2 DIABETES MELLITUS
     Dosage: 10 UG, 2/D
     Dates: start: 20070201, end: 20090301
  2. LISINOPRIL [Concomitant]
     Dosage: 40 MG, DAILY (1/D)
  3. METOPROLOL [Concomitant]
     Dosage: 25 MG, 2/D
  4. AMLODIPINE [Concomitant]
     Dosage: 5 MG, EACH EVENING
  5. LEVEMIR [Concomitant]
     Dosage: 70 U, EACH EVENING
  6. NOVOLOG [Concomitant]
     Dosage: 10 U, UNK
  7. SIMVASTATIN [Concomitant]
     Dosage: 80 MG, DAILY (1/D)
  8. LORAZEPAM [Concomitant]
     Dosage: 1 MG, UNK
  9. HYDROCHLOROTHIAZIDE [Concomitant]
     Dosage: 12.5 MG, DAILY (1/D)

REACTIONS (3)
  - CHILLS [None]
  - HYPERHIDROSIS [None]
  - PANCREATITIS [None]
